FAERS Safety Report 14473272 (Version 1)
Quarter: 2018Q1

REPORT INFORMATION
  Report Type: Other
  Country: US (occurrence: US)
  Receive Date: 20180201
  Receipt Date: 20180201
  Transmission Date: 20180509
  Serious: Yes (Life-Threatening, Hospitalization)
  Sender: FDA-Public Use
  Company Number: US-ORCHID HEALTHCARE-2041200

PATIENT

DRUGS (3)
  1. CARVEDILOL. [Suspect]
     Active Substance: CARVEDILOL
     Route: 065
  2. DOXEPIN [Suspect]
     Active Substance: DOXEPIN
     Route: 065
  3. AMLODIPINE BESYLATE. [Suspect]
     Active Substance: AMLODIPINE BESYLATE
     Route: 065

REACTIONS (6)
  - Pneumonia staphylococcal [Unknown]
  - Fluid overload [Unknown]
  - Acute respiratory distress syndrome [Unknown]
  - Arthropod bite [Unknown]
  - Pulmonary haemorrhage [Unknown]
  - Cardiogenic shock [Recovered/Resolved]
